FAERS Safety Report 21386645 (Version 2)
Quarter: 2022Q4

REPORT INFORMATION
  Report Type: Report from Study
  Country: US (occurrence: US)
  Receive Date: 20220928
  Receipt Date: 20221104
  Transmission Date: 20230113
  Serious: Yes (Other)
  Sender: FDA-Public Use
  Company Number: US-ABBVIE-4130472

PATIENT
  Age: 71 Year
  Sex: Male
  Weight: 83 kg

DRUGS (9)
  1. RINVOQ [Suspect]
     Active Substance: UPADACITINIB
     Indication: Rheumatoid arthritis
     Dosage: FORM STRENGTH: 15 MILLIGRAM
     Route: 048
  2. ASPIRIN [Concomitant]
     Active Substance: ASPIRIN
     Indication: Product used for unknown indication
     Dosage: FREQUENCY TEXT: CHEWABLE TABLET 81 MG 1 (ONE) TIME EACH DAY
     Route: 048
  3. CHOLECALCIFEROL [Concomitant]
     Active Substance: CHOLECALCIFEROL
     Indication: Product used for unknown indication
     Dosage: TAKE 1 TABLET (2,000 UNITS TOTAL) BY MOUTH 1 (ONE) TIME EACH DAY. 50 MCG
     Dates: start: 20220630
  4. LEVOTHYROXINE SODIUM [Concomitant]
     Active Substance: LEVOTHYROXINE SODIUM
     Indication: Product used for unknown indication
     Dosage: TAKE 1 TABLET (88 MCG TOTAL) BY MOUTH 1 (ONE) TIME EACH DAY BEFORE BREAKFAST.
  5. SIMVASTATIN [Concomitant]
     Active Substance: SIMVASTATIN
     Indication: Product used for unknown indication
     Dosage: TAKE 1 TABLET (20 MG TOTAL) BY MOUTH EVERY NIGHT.
     Dates: start: 20220630
  6. TAMSULOSIN [Concomitant]
     Active Substance: TAMSULOSIN
     Indication: Product used for unknown indication
     Dosage: TAKE 0.4 MG BY MOUTH EVERY NIGHT?(FLOMAX) 0.4 MG 24 HR CAPSULE)
     Dates: start: 20220204
  7. BUPROPION HYDROCHLORIDE XL [Concomitant]
     Active Substance: BUPROPION HYDROCHLORIDE
     Indication: Product used for unknown indication
     Dosage: TAKE 1 TABLET (150 MG TOTAL) BY MOUTH 1 (ONE) TIME EACH DAY IN THE MORNING.
     Dates: start: 20220707
  8. OMEPRAZOLE [Concomitant]
     Active Substance: OMEPRAZOLE
     Indication: Product used for unknown indication
     Dosage: TAKE 1 CAPSULE (40 MG_TOTAL) BY MOUTH 1 (ONE) TIME EACH DAY.?(VITAMIN D3) 50 MCG (2,000 UNIT) TAB...
     Dates: start: 20220630
  9. CELECOXIB [Concomitant]
     Active Substance: CELECOXIB
     Indication: Product used for unknown indication
     Dosage: 200 MG
     Dates: start: 20211118, end: 20220707

REACTIONS (8)
  - Prostatectomy [Unknown]
  - Benign prostatic hyperplasia [Unknown]
  - Arthralgia [Unknown]
  - Wound [Unknown]
  - Blood cholesterol increased [Unknown]
  - Low density lipoprotein increased [Unknown]
  - Hydrocele [Unknown]
  - Hydrocele operation [Recovered/Resolved]

NARRATIVE: CASE EVENT DATE: 20220627
